FAERS Safety Report 14421628 (Version 1)
Quarter: 2018Q1

REPORT INFORMATION
  Report Type: Spontaneous
  Country: US (occurrence: US)
  Receive Date: 20180122
  Receipt Date: 20180122
  Transmission Date: 20180509
  Serious: No
  Sender: FDA-Public Use
  Company Number: US-INTERCEPT-PMOCA2017000929

PATIENT

DRUGS (32)
  1. CLONAZEPAM. [Concomitant]
     Active Substance: CLONAZEPAM
     Dosage: 0.5 MG, UNK
     Dates: start: 20110614, end: 20110614
  2. DICLOFENAC [Concomitant]
     Active Substance: DICLOFENAC
     Dosage: GEL
     Dates: start: 20161205, end: 20170515
  3. ORPHENADRINE [Concomitant]
     Active Substance: ORPHENADRINE
     Dosage: 30 MG/ML, UNK
     Dates: start: 20111014, end: 20111014
  4. PAROXETINE. [Concomitant]
     Active Substance: PAROXETINE
     Dosage: 10 MG, UNK
     Dates: start: 20110614, end: 20110614
  5. OCALIVA [Suspect]
     Active Substance: OBETICHOLIC ACID
     Indication: PRIMARY BILIARY CHOLANGITIS
     Dosage: 5 MG, QD
     Route: 048
     Dates: start: 20170501
  6. BACLOFEN. [Concomitant]
     Active Substance: BACLOFEN
     Dosage: 10 MG, UNK
     Dates: start: 20161205, end: 20170814
  7. CIPROFLOXACIN. [Concomitant]
     Active Substance: CIPROFLOXACIN
     Dosage: 500 MG, UNK
     Dates: start: 20170523
  8. CLONAZEPAM. [Concomitant]
     Active Substance: CLONAZEPAM
     Dosage: 2 MG, UNK
     Dates: start: 20161025, end: 20171028
  9. GABAPENTIN. [Concomitant]
     Active Substance: GABAPENTIN
     Dosage: 400 MG, UNK
     Dates: start: 20170615
  10. MEPERIDINE [Concomitant]
     Active Substance: MEPERIDINE
     Dosage: 50 MG/ML, UNK
     Dates: start: 20170502, end: 20170504
  11. GAS RELIEF [Concomitant]
     Active Substance: DIMETHICONE
     Dosage: 125 MG, UNK
     Dates: start: 20170323, end: 20170428
  12. INTESTINEX [Concomitant]
     Dosage: UNK
     Dates: start: 20170323, end: 20170919
  13. KENALOG [Concomitant]
     Active Substance: TRIAMCINOLONE ACETONIDE
     Dosage: 40 MG/ML, UNK
     Dates: start: 20110614, end: 20110614
  14. URSODIOL. [Concomitant]
     Active Substance: URSODIOL
     Dosage: 300 MG, UNK
     Dates: start: 20170418, end: 20170617
  15. CARAFATE [Concomitant]
     Active Substance: SUCRALFATE
     Dosage: 1 GM, UNK
     Dates: start: 20161205, end: 20170122
  16. GABAPENTIN. [Concomitant]
     Active Substance: GABAPENTIN
     Dosage: 600 MG, UNK
     Dates: start: 20161205, end: 20170630
  17. OMEPRAZOLE. [Concomitant]
     Active Substance: OMEPRAZOLE
     Dosage: 20 MG, UNK
     Dates: start: 20161001, end: 20171109
  18. TANDEM [Concomitant]
     Active Substance: FERROUS ASPARTO GLYCINATE\FERROUS FUMARATE
     Dosage: UNK MG, UNK
     Dates: start: 20170323, end: 20170522
  19. DICLOFENAC POTASSIUM. [Concomitant]
     Active Substance: DICLOFENAC POTASSIUM
     Dosage: 50 MG, UNK
     Dates: start: 20110614, end: 20170522
  20. METOCLOPRAM [Concomitant]
     Active Substance: METOCLOPRAMIDE
     Dosage: 10 MG, UNK
     Dates: start: 20161205, end: 20170311
  21. MIDAZOLAM [Concomitant]
     Active Substance: MIDAZOLAM HYDROCHLORIDE
     Dosage: 10 MG/ML, UNK
     Dates: start: 20170502, end: 20170504
  22. VITAMIN D3 [Concomitant]
     Active Substance: CHOLECALCIFEROL
     Dosage: UNK
     Dates: start: 20161001, end: 20171006
  23. ZOLPIDEM [Concomitant]
     Active Substance: ZOLPIDEM\ZOLPIDEM TARTRATE
     Dosage: 10 MG, UNK
     Dates: start: 20110614, end: 20110614
  24. CITALOPRAM [Concomitant]
     Active Substance: CITALOPRAM HYDROBROMIDE
     Dosage: 20 MG, UNK
     Dates: start: 20161025, end: 20171028
  25. BUTALBITAL APAP CAFFEINE [Concomitant]
     Dosage: UNK
     Dates: start: 20161205, end: 20170223
  26. DIAZEPAM. [Concomitant]
     Active Substance: DIAZEPAM
     Dosage: 5 MG, UNK
     Dates: start: 20161025, end: 20170422
  27. KETOROLAC [Concomitant]
     Active Substance: KETOROLAC\KETOROLAC TROMETHAMINE
     Dosage: 60 MG, UNK
     Dates: start: 20110614, end: 20110614
  28. PANTOPRAZOLE [Concomitant]
     Active Substance: PANTOPRAZOLE
     Dosage: 40 MG, UNK
     Dates: start: 20170323, end: 20170522
  29. BACLOFEN. [Concomitant]
     Active Substance: BACLOFEN
     Dosage: 20 MG, UNK
     Dates: start: 20170627, end: 20171028
  30. DETROL [Concomitant]
     Active Substance: TOLTERODINE TARTRATE
     Dosage: 2 MG, UNK
     Dates: start: 20110614, end: 20110614
  31. FLUMAZENIL. [Concomitant]
     Active Substance: FLUMAZENIL
     Dosage: 0.5 MG, UNK
     Dates: start: 20170502, end: 20170504
  32. SUPREP BOWEL PREP [Concomitant]
     Active Substance: MAGNESIUM SULFATE\POTASSIUM SULFATE\SODIUM SULFATE
     Dosage: UNK
     Dates: start: 20170501, end: 20170503

REACTIONS (1)
  - Migraine [Not Recovered/Not Resolved]

NARRATIVE: CASE EVENT DATE: 201708
